FAERS Safety Report 23395130 (Version 1)
Quarter: 2024Q1

REPORT INFORMATION
  Report Type: Spontaneous
  Country: SK (occurrence: SK)
  Receive Date: 20240112
  Receipt Date: 20240112
  Transmission Date: 20240409
  Serious: Yes (Death)
  Sender: FDA-Public Use
  Company Number: SK-BoehringerIngelheim-2022-BI-204650

PATIENT
  Age: 72 Year
  Sex: Male

DRUGS (2)
  1. OFEV [Suspect]
     Active Substance: NINTEDANIB
     Indication: Idiopathic pulmonary fibrosis
     Dates: start: 20220520
  2. OFEV [Suspect]
     Active Substance: NINTEDANIB
     Dates: start: 20221102

REACTIONS (2)
  - Myocardial infarction [Fatal]
  - Decreased appetite [Unknown]

NARRATIVE: CASE EVENT DATE: 20240103
